FAERS Safety Report 4794378-7 (Version None)
Quarter: 2005Q4

REPORT INFORMATION
  Report Type: 
  Country: None (occurrence: None)
  Receive Date: 20051011
  Receipt Date: 20050713
  Transmission Date: 20060501
  Serious: Yes (Hospitalization)
  Sender: FDA-Public Use
  Company Number: GB-MERCK-0507GBR00133

PATIENT
  Age: 69 Year
  Sex: Female
  Weight: 89 kg

DRUGS (12)
  1. VIOXX [Suspect]
     Indication: OSTEOARTHRITIS
     Route: 048
     Dates: start: 20010126, end: 20041001
  2. VIOXX [Suspect]
     Indication: SPINAL OSTEOARTHRITIS
     Route: 048
     Dates: start: 20010126, end: 20041001
  3. PHOLCODINE [Concomitant]
     Route: 065
     Dates: start: 20010301
  4. METFORMIN HYDROCHLORIDE [Concomitant]
     Route: 065
     Dates: start: 20010126, end: 20011015
  5. HEPARINOID AND SALICYLIC ACID [Concomitant]
     Route: 065
  6. ACETAMINOPHEN [Concomitant]
     Route: 065
  7. BENDROFLUMETHIAZIDE [Concomitant]
     Route: 065
  8. BENDROFLUMETHIAZIDE [Concomitant]
     Route: 065
  9. ZOCOR [Concomitant]
     Route: 048
     Dates: start: 20010126
  10. ENALAPRIL MALEATE [Concomitant]
     Route: 048
     Dates: start: 20010126, end: 20011014
  11. ENALAPRIL MALEATE [Concomitant]
     Route: 048
     Dates: start: 20011015
  12. RANITIDINE [Concomitant]
     Route: 065
     Dates: start: 20010116

REACTIONS (6)
  - ACUTE MYOCARDIAL INFARCTION [None]
  - HIGH DENSITY LIPOPROTEIN INCREASED [None]
  - HYPERTENSION [None]
  - RESPIRATORY TRACT INFECTION [None]
  - VENTRICULAR DYSFUNCTION [None]
  - WEIGHT INCREASED [None]
